FAERS Safety Report 13720582 (Version 1)
Quarter: 2017Q3

REPORT INFORMATION
  Report Type: Spontaneous
  Country: US (occurrence: US)
  Receive Date: 20170706
  Receipt Date: 20170706
  Transmission Date: 20171127
  Serious: No
  Sender: FDA-Public Use
  Company Number: US-JNJFOC-20170624561

PATIENT
  Sex: Male

DRUGS (3)
  1. STELARA [Suspect]
     Active Substance: USTEKINUMAB
     Indication: PSORIASIS
     Route: 058
     Dates: start: 20170323
  2. STELARA [Suspect]
     Active Substance: USTEKINUMAB
     Indication: PSORIASIS
     Route: 058
  3. PROTOPIC [Concomitant]
     Active Substance: TACROLIMUS
     Route: 061

REACTIONS (4)
  - Myalgia [Unknown]
  - Photophobia [Unknown]
  - Muscle atrophy [Unknown]
  - Headache [Unknown]

NARRATIVE: CASE EVENT DATE: 2017
